FAERS Safety Report 9179932 (Version 1)
Quarter: 2012Q4

REPORT INFORMATION
  Report Type: 
  Country: PL (occurrence: PL)
  Receive Date: 20121029
  Receipt Date: 20121029
  Transmission Date: 20130627
  Serious: Yes (Other)
  Sender: FDA-Public Use
  Company Number: PHHY2012PL096819

PATIENT
  Sex: Male

DRUGS (1)
  1. EXTAVIA [Suspect]

REACTIONS (6)
  - Borrelia infection [Unknown]
  - Muscle tightness [Unknown]
  - Muscle spasms [Unknown]
  - Headache [Unknown]
  - Convulsion [Unknown]
  - Night sweats [Unknown]
